FAERS Safety Report 14474142 (Version 1)
Quarter: 2018Q1

REPORT INFORMATION
  Report Type: Spontaneous
  Country: RU (occurrence: RU)
  Receive Date: 20180201
  Receipt Date: 20180201
  Transmission Date: 20180509
  Serious: Yes (Hospitalization)
  Sender: FDA-Public Use
  Company Number: RU-ASTRAZENECA-2018SE12483

PATIENT
  Age: 79 Year
  Sex: Female
  Weight: 85 kg

DRUGS (3)
  1. CARDIOMAGNYL [Concomitant]
     Active Substance: ASPIRIN\MAGNESIUM HYDROXIDE
  2. ENAP [Concomitant]
     Active Substance: ENALAPRIL
  3. BRILINTA [Suspect]
     Active Substance: TICAGRELOR
     Indication: ANGINA UNSTABLE
     Route: 048
     Dates: start: 201607

REACTIONS (3)
  - Off label use [Unknown]
  - Product use issue [Unknown]
  - Breast cyst [Unknown]

NARRATIVE: CASE EVENT DATE: 201709
